FAERS Safety Report 10005663 (Version 1)
Quarter: 2014Q1

REPORT INFORMATION
  Report Type: Spontaneous
  Country: US (occurrence: US)
  Receive Date: 20140313
  Receipt Date: 20140313
  Transmission Date: 20141002
  Serious: No
  Sender: FDA-Public Use
  Company Number: US-BIOGENIDEC-2014BI021202

PATIENT
  Sex: Female

DRUGS (9)
  1. TECFIDERA [Suspect]
     Indication: MULTIPLE SCLEROSIS
  2. AMBIEN PAK [Concomitant]
  3. HM VITAMIN B12 [Concomitant]
  4. D 1000 [Concomitant]
  5. ALEVE [Concomitant]
  6. OXYCODONE HCL [Concomitant]
  7. OMEPRAZOLE [Concomitant]
  8. XANAX [Concomitant]
  9. SELEGILINE HCL [Concomitant]

REACTIONS (2)
  - Hyperhidrosis [Unknown]
  - Hot flush [Unknown]
